FAERS Safety Report 4287418-5 (Version None)
Quarter: 2004Q1

REPORT INFORMATION
  Report Type: 
  Country: None (occurrence: None)
  Receive Date: 20040209
  Receipt Date: 20030623
  Transmission Date: 20041129
  Serious: No
  Sender: FDA-Public Use
  Company Number: US-GLAXOSMITHKLINE-A0413564A

PATIENT
  Age: 38 Year
  Sex: Female

DRUGS (3)
  1. PAXIL CR [Suspect]
     Indication: DEPRESSION
     Dosage: 12.5MG AT NIGHT
     Route: 048
     Dates: start: 20030611, end: 20030618
  2. BUSPAR [Concomitant]
  3. ALEVE [Concomitant]

REACTIONS (7)
  - ABDOMINAL PAIN UPPER [None]
  - DIARRHOEA [None]
  - DIZZINESS [None]
  - FEELING COLD [None]
  - FLUSHING [None]
  - NAUSEA [None]
  - SKIN BURNING SENSATION [None]
